FAERS Safety Report 9046722 (Version 2)
Quarter: 2013Q2

REPORT INFORMATION
  Report Type: Spontaneous
  Country: US (occurrence: US)
  Receive Date: 20130204
  Receipt Date: 20130405
  Transmission Date: 20140414
  Serious: No
  Sender: FDA-Public Use
  Company Number: US-BIOGENIDEC-2013BI008416

PATIENT
  Age: 60 Year
  Sex: Female

DRUGS (11)
  1. TYSABRI [Suspect]
     Indication: MULTIPLE SCLEROSIS
     Route: 042
     Dates: start: 20120503
  2. SERTRALINE [Concomitant]
     Route: 048
  3. PREMARIN [Concomitant]
     Route: 048
  4. CALCIUM [Concomitant]
     Route: 048
  5. AVALIDE [Concomitant]
  6. CARBAMAZEPINE [Concomitant]
     Route: 048
  7. METHYLPHENIDATE [Concomitant]
     Route: 048
  8. VITAMIN D [Concomitant]
     Route: 048
  9. PREDNISONE [Concomitant]
     Route: 048
  10. ERGOCALCIFEROL [Concomitant]
     Route: 048
  11. REBIF [Concomitant]

REACTIONS (14)
  - Musculoskeletal pain [Unknown]
  - Muscle spasms [Unknown]
  - Muscular weakness [Unknown]
  - Multiple allergies [Unknown]
  - Gait disturbance [Unknown]
  - Musculoskeletal stiffness [Unknown]
  - Progressive multiple sclerosis [Unknown]
  - Muscle spasticity [Unknown]
  - Muscle tightness [Unknown]
  - Pain in extremity [Unknown]
  - Bronchitis [Unknown]
  - Drug ineffective [Recovered/Resolved]
  - Drug effect decreased [Unknown]
  - Fatigue [Unknown]
